FAERS Safety Report 15574407 (Version 2)
Quarter: 2019Q1

REPORT INFORMATION
  Report Type: Report from Study
  Country: BR (occurrence: BR)
  Receive Date: 20181101
  Receipt Date: 20190115
  Transmission Date: 20190417
  Serious: Yes (Other)
  Sender: FDA-Public Use
  Company Number: PHHY2016BR038307

PATIENT
  Age: 53 Year
  Sex: Female
  Weight: 64 kg

DRUGS (7)
  1. SANDOSTATIN LAR DEPOT [Suspect]
     Active Substance: OCTREOTIDE ACETATE
     Dosage: 30 MG, QMO
     Route: 030
  2. SANDOSTATIN LAR DEPOT [Suspect]
     Active Substance: OCTREOTIDE ACETATE
     Indication: ACROMEGALY
     Dosage: 30 MG, UNK
     Route: 030
     Dates: start: 2006
  3. SANDOSTATIN LAR DEPOT [Suspect]
     Active Substance: OCTREOTIDE ACETATE
     Dosage: 20 MG, UNK
     Route: 030
  4. SANDOSTATIN LAR DEPOT [Suspect]
     Active Substance: OCTREOTIDE ACETATE
     Dosage: 30 MG (1 OF 30 MG AND 1 OF 10 MG),QMO
     Route: 030
     Dates: start: 2009
  5. SANDOSTATIN LAR DEPOT [Suspect]
     Active Substance: OCTREOTIDE ACETATE
     Dosage: 40 MG, QMO
     Route: 030
  6. SANDOSTATIN LAR DEPOT [Suspect]
     Active Substance: OCTREOTIDE ACETATE
     Dosage: 30 MG, UNK
     Route: 030
  7. CABERGOLINE. [Concomitant]
     Active Substance: CABERGOLINE
     Indication: PRODUCT USED FOR UNKNOWN INDICATION
     Dosage: UNK (TWO TABLETS PER WEEK)
     Route: 065

REACTIONS (33)
  - Pain [Unknown]
  - Dental caries [Unknown]
  - Heart alternation [Unknown]
  - Dyspepsia [Unknown]
  - Headache [Recovering/Resolving]
  - Tooth loss [Not Recovered/Not Resolved]
  - Gait disturbance [Unknown]
  - Fear of disease [Recovering/Resolving]
  - Influenza [Recovering/Resolving]
  - Blood pressure increased [Unknown]
  - Teeth brittle [Unknown]
  - Asthenia [Unknown]
  - Abdominal pain upper [Recovering/Resolving]
  - Abdominal distension [Unknown]
  - Pain in extremity [Unknown]
  - Weight decreased [Unknown]
  - Laziness [Unknown]
  - Insulin-like growth factor increased [Unknown]
  - Limb malformation [Not Recovered/Not Resolved]
  - Eating disorder [Unknown]
  - Arthralgia [Not Recovered/Not Resolved]
  - Malaise [Unknown]
  - Sluggishness [Recovering/Resolving]
  - Insomnia [Not Recovered/Not Resolved]
  - Mastication disorder [Unknown]
  - Drug ineffective [Unknown]
  - Peripheral swelling [Not Recovered/Not Resolved]
  - Cough [Recovering/Resolving]
  - Neoplasm progression [Recovering/Resolving]
  - Bone pain [Unknown]
  - Hyperhidrosis [Unknown]
  - Abdominal pain [Recovering/Resolving]
  - Dizziness [Recovering/Resolving]

NARRATIVE: CASE EVENT DATE: 20181221
